FAERS Safety Report 12645024 (Version 6)
Quarter: 2016Q3

REPORT INFORMATION
  Report Type: Spontaneous
  Country: US (occurrence: US)
  Receive Date: 20160811
  Receipt Date: 20160909
  Transmission Date: 20161109
  Serious: Yes (Other)
  Sender: FDA-Public Use
  Company Number: US-BAYER-2016-152562

PATIENT
  Age: 67 Year
  Sex: Female

DRUGS (1)
  1. GADAVIST [Suspect]
     Active Substance: GADOBUTROL
     Indication: NUCLEAR MAGNETIC RESONANCE IMAGING ABDOMINAL
     Dosage: UNK UNK, ONCE
     Route: 042
     Dates: start: 20160801, end: 20160801

REACTIONS (30)
  - Blood pressure systolic increased [Recovering/Resolving]
  - Hypotension [Recovering/Resolving]
  - Feeling hot [Recovering/Resolving]
  - Swelling face [Recovering/Resolving]
  - Tremor [Recovering/Resolving]
  - Product name confusion [None]
  - Thirst [Recovering/Resolving]
  - Vertigo [Recovering/Resolving]
  - Erythema [None]
  - Insomnia [None]
  - Wrong drug administered [None]
  - Off label use [None]
  - Chills [Recovering/Resolving]
  - Presyncope [Recovering/Resolving]
  - Hypoaesthesia [Recovering/Resolving]
  - Contrast media reaction [Recovering/Resolving]
  - Dyspnoea [Recovering/Resolving]
  - Hypoaesthesia oral [Recovering/Resolving]
  - Contrast media allergy [Recovering/Resolving]
  - Paraesthesia oral [Recovering/Resolving]
  - Anxiety [Recovering/Resolving]
  - Mobility decreased [Recovering/Resolving]
  - Headache [None]
  - Paraesthesia [Recovering/Resolving]
  - Dizziness [Recovering/Resolving]
  - Malaise [Recovering/Resolving]
  - Flushing [Recovering/Resolving]
  - Nausea [Recovering/Resolving]
  - Fatigue [None]
  - Asthenia [None]

NARRATIVE: CASE EVENT DATE: 20160801
